FAERS Safety Report 19400690 (Version 2)
Quarter: 2021Q4

REPORT INFORMATION
  Report Type: Spontaneous
  Country: JP (occurrence: JP)
  Receive Date: 20210610
  Receipt Date: 20211020
  Transmission Date: 20220303
  Serious: Yes (Death, Other)
  Sender: FDA-Public Use
  Company Number: JP-JNJFOC-A-CH2019-186326

PATIENT
  Age: 68 Year
  Sex: Female
  Weight: 63 kg

DRUGS (10)
  1. UPTRAVI [Suspect]
     Active Substance: SELEXIPAG
     Indication: Pulmonary arterial hypertension
     Dosage: 1.2 MG, BID
     Route: 048
     Dates: start: 20190107, end: 20190203
  2. UPTRAVI [Suspect]
     Active Substance: SELEXIPAG
     Dosage: 0.2 MG, BID
     Route: 048
     Dates: start: 20180730, end: 20180826
  3. UPTRAVI [Suspect]
     Active Substance: SELEXIPAG
     Dosage: 0.4 MG, BID
     Route: 048
     Dates: start: 20180827, end: 20180930
  4. UPTRAVI [Suspect]
     Active Substance: SELEXIPAG
     Dosage: 0.6 MG, BID
     Route: 048
     Dates: start: 20181001, end: 20181104
  5. UPTRAVI [Suspect]
     Active Substance: SELEXIPAG
     Dosage: 0.8 MG, BID
     Route: 048
     Dates: start: 20181105, end: 20181209
  6. UPTRAVI [Suspect]
     Active Substance: SELEXIPAG
     Dosage: 1.6 MG, BID1 MG, BID
     Route: 048
     Dates: start: 20181210, end: 20190106
  7. UPTRAVI [Suspect]
     Active Substance: SELEXIPAG
     Dosage: 10 MG, QD1.4 MG, BID
     Route: 048
     Dates: start: 20190204, end: 20190407
  8. UPTRAVI [Suspect]
     Active Substance: SELEXIPAG
     Dosage: 40 MG, QD1.6 MG, BID
     Route: 048
     Dates: start: 20190408
  9. ADCIRCA [Concomitant]
     Active Substance: TADALAFIL
     Indication: Pulmonary arterial hypertension
     Dosage: 0.2 MG, BID
     Route: 065
     Dates: start: 20151118
  10. OPSUMIT [Concomitant]
     Active Substance: MACITENTAN

REACTIONS (3)
  - Death [Fatal]
  - Anaemia [Recovered/Resolved]
  - Diarrhoea [Not Recovered/Not Resolved]

NARRATIVE: CASE EVENT DATE: 20181105
